FAERS Safety Report 11210743 (Version 1)
Quarter: 2015Q2

REPORT INFORMATION
  Report Type: Spontaneous
  Country: BE (occurrence: BE)
  Receive Date: 20150622
  Receipt Date: 20150622
  Transmission Date: 20150821
  Serious: Yes (Hospitalization)
  Sender: FDA-Public Use
  Company Number: BE-ALLERGAN-1511566US

PATIENT
  Age: 8 Year
  Sex: Male
  Weight: 41 kg

DRUGS (2)
  1. PHENYLEPHRINE [Suspect]
     Active Substance: PHENYLEPHRINE\PHENYLEPHRINE HYDROCHLORIDE
     Indication: PRODUCT USED FOR UNKNOWN INDICATION
     Dosage: UNK
  2. NAPHAZOLINE HCL.012%, POLYSORBATE 80 .2%, ROHTO [Suspect]
     Active Substance: NAPHAZOLINE HYDROCHLORIDE\POLYSORBATE 80
     Indication: PRODUCT USED FOR UNKNOWN INDICATION
     Dosage: UNK

REACTIONS (7)
  - Bradycardia [Recovered/Resolved]
  - Pallor [Recovered/Resolved]
  - Headache [Recovered/Resolved]
  - Drug dispensing error [Unknown]
  - Vomiting [Recovered/Resolved]
  - Photophobia [Recovered/Resolved]
  - Accidental overdose [Unknown]
